FAERS Safety Report 13517806 (Version 1)
Quarter: 2017Q2

REPORT INFORMATION
  Report Type: Spontaneous
  Country: FR (occurrence: FR)
  Receive Date: 20170505
  Receipt Date: 20170505
  Transmission Date: 20170830
  Serious: Yes (Other)
  Sender: FDA-Public Use
  Company Number: FR-BAYER-2017-081536

PATIENT
  Age: 80 Year
  Sex: Male

DRUGS (2)
  1. STIVARGA [Suspect]
     Active Substance: REGORAFENIB
     Indication: METASTASES TO LIVER
  2. STIVARGA [Suspect]
     Active Substance: REGORAFENIB
     Indication: RECTAL ADENOCARCINOMA
     Dosage: 160 MG, UNK
     Route: 048
     Dates: start: 201604, end: 201608

REACTIONS (3)
  - Rectal adenocarcinoma [None]
  - Palmar-plantar erythrodysaesthesia syndrome [None]
  - Asthenia [None]

NARRATIVE: CASE EVENT DATE: 201608
